FAERS Safety Report 18280725 (Version 2)
Quarter: 2020Q3

REPORT INFORMATION
  Report Type: Spontaneous
  Country: US (occurrence: US)
  Receive Date: 20200917
  Receipt Date: 20200925
  Transmission Date: 20201103
  Serious: No
  Sender: FDA-Public Use
  Company Number: US-009507513-2007USA005763

PATIENT
  Sex: Female

DRUGS (2)
  1. ETONOGESTREL (+) ETHINYL ESTRADIOL [Suspect]
     Active Substance: ETHINYL ESTRADIOL\ETONOGESTREL
     Indication: CONTRACEPTION
     Dosage: 1 RING
     Route: 067
  2. NUVARING [Suspect]
     Active Substance: ETHINYL ESTRADIOL\ETONOGESTREL
     Dosage: UNK

REACTIONS (6)
  - Insomnia [Recovered/Resolved]
  - Dysuria [Recovered/Resolved]
  - Dyspareunia [Recovered/Resolved]
  - Medical device site discomfort [Unknown]
  - Quality of life decreased [Recovered/Resolved]
  - Vulvovaginal pruritus [Recovered/Resolved]
